FAERS Safety Report 5767402-2 (Version None)
Quarter: 2008Q2

REPORT INFORMATION
  Report Type: 
  Country: None (occurrence: None)
  Receive Date: 20080612
  Receipt Date: 20080604
  Transmission Date: 20081010
  Serious: Yes (Hospitalization)
  Sender: FDA-Public Use
  Company Number: JP-MERCK-0806USA01110

PATIENT
  Age: 74 Year
  Sex: Male

DRUGS (9)
  1. DECADRON [Suspect]
     Indication: INCREASED BRONCHIAL SECRETION
     Route: 048
  2. HORMONES (UNSPECIFIED) [Suspect]
     Indication: INCREASED BRONCHIAL SECRETION
     Route: 065
  3. HORMONES (UNSPECIFIED) [Suspect]
  4. PREDNISOLONE [Suspect]
     Indication: INCREASED BRONCHIAL SECRETION
     Route: 048
  5. PREDNISOLONE [Suspect]
     Route: 048
  6. PREDNISOLONE [Suspect]
     Route: 048
  7. ONON [Concomitant]
     Indication: INCREASED BRONCHIAL SECRETION
     Route: 048
  8. ERYTHROMYCIN [Concomitant]
     Indication: INCREASED BRONCHIAL SECRETION
     Route: 065
  9. [THERAPY UNSPECIFIED] [Concomitant]
     Indication: INCREASED BRONCHIAL SECRETION
     Route: 065

REACTIONS (3)
  - DIABETES MELLITUS [None]
  - GAIT DISTURBANCE [None]
  - MYOPATHY [None]
